FAERS Safety Report 22624065 (Version 1)
Quarter: 2023Q2

REPORT INFORMATION
  Report Type: Spontaneous
  Country: US (occurrence: US)
  Receive Date: 20230621
  Receipt Date: 20230621
  Transmission Date: 20230721
  Serious: No
  Sender: FDA-Public Use
  Company Number: US-GSKCCFUS-Case-01727499_AE-97338

PATIENT
  Sex: Male

DRUGS (1)
  1. NUCALA [Suspect]
     Active Substance: MEPOLIZUMAB
     Indication: Asthma
     Dosage: UNK
     Route: 058
     Dates: start: 20230602

REACTIONS (5)
  - Lethargy [Unknown]
  - Headache [Unknown]
  - Fatigue [Unknown]
  - Feeling abnormal [Unknown]
  - Brain fog [Unknown]
